FAERS Safety Report 7957266-0 (Version None)
Quarter: 2011Q4

REPORT INFORMATION
  Report Type: 
  Country: None (occurrence: None)
  Receive Date: 20111130
  Receipt Date: 20111116
  Transmission Date: 20120403
  Serious: Yes (Other)
  Sender: FDA-Public Use
  Company Number: LEO-2011-01016

PATIENT
  Sex: Female

DRUGS (2)
  1. COVERAM (AMLODIPINE BESILATE, PERINDOPRIL, ARGININE) [Concomitant]
  2. INNOHEP [Suspect]
     Indication: HYSTERECTOMY
     Dosage: 3500 IU, SUBCUTANEOUS
     Route: 058
     Dates: start: 20111103

REACTIONS (1)
  - PLATELET COUNT INCREASED [None]
